FAERS Safety Report 17566557 (Version 9)
Quarter: 2020Q3

REPORT INFORMATION
  Report Type: Report from Study
  Country: FR (occurrence: FR)
  Receive Date: 20200320
  Receipt Date: 20200923
  Transmission Date: 20201102
  Serious: Yes (Hospitalization)
  Sender: FDA-Public Use
  Company Number: FR-ROCHE-2434880

PATIENT
  Age: 57 Year
  Sex: Male
  Weight: 54 kg

DRUGS (53)
  1. OCRELIZUMAB. [Suspect]
     Active Substance: OCRELIZUMAB
     Route: 042
     Dates: start: 20190515
  2. DIPROLENE [Concomitant]
     Active Substance: BETAMETHASONE DIPROPIONATE
     Dates: start: 20150914, end: 20151001
  3. GUTRON [Concomitant]
     Active Substance: MIDODRINE HYDROCHLORIDE
     Indication: ORTHOSTATIC HYPOTENSION
     Dates: start: 20180517
  4. TAHOR [Concomitant]
     Active Substance: ATORVASTATIN CALCIUM
     Indication: HYPERCHOLESTEROLAEMIA
     Dates: start: 2008, end: 20151210
  5. TAHOR [Concomitant]
     Active Substance: ATORVASTATIN CALCIUM
     Dates: start: 20171230
  6. TAHOR [Concomitant]
     Active Substance: ATORVASTATIN CALCIUM
  7. SPECIAFOLDINE [Concomitant]
     Active Substance: FOLIC ACID
     Dosage: 2 TABS EVERY WEDNESDAY
  8. DIPROLENE [Concomitant]
     Active Substance: BETAMETHASONE DIPROPIONATE
     Dosage: 1 APPLICATION DAILY, THEN SWITCH TO AN EMOLLIENT 1 APPLICATION DAILY
  9. POLARAMINE [Concomitant]
     Active Substance: DEXCHLORPHENIRAMINE MALEATE
     Indication: PREMEDICATION
     Dosage: SUBSEQUENT DOSES ON 04/JUL/2012, 05/DEC/2012, 21/DEC/2012, 22/MAY/2013, 05/JUN/2013, 06/NOV/2013, 20
     Dates: start: 20120620
  10. PREVENAR [Concomitant]
     Active Substance: PNEUMOCOCCAL 7-VALENT CONJUGATE VACCINE (DIPHTHERIA CRM197 PROTEIN)
     Indication: PROPHYLAXIS
     Dates: start: 20190909, end: 20190909
  11. TRAMADOL. [Concomitant]
     Active Substance: TRAMADOL
     Dates: start: 20191212, end: 20191216
  12. SUCRALFATE. [Concomitant]
     Active Substance: SUCRALFATE
  13. OCRELIZUMAB. [Suspect]
     Active Substance: OCRELIZUMAB
     Indication: PRIMARY PROGRESSIVE MULTIPLE SCLEROSIS
     Route: 042
     Dates: start: 20160224
  14. OCRELIZUMAB. [Suspect]
     Active Substance: OCRELIZUMAB
     Route: 042
     Dates: start: 20160810
  15. CERAT DE GALIEN [Concomitant]
     Indication: PRURITUS
     Dates: start: 20190129
  16. EDUCTYL [Concomitant]
     Active Substance: POTASSIUM BITARTRATE\SODIUM BICARBONATE
     Indication: CONSTIPATION
     Dosage: 1 UNIT
     Dates: start: 20170712
  17. ISPAGHUL [Concomitant]
     Indication: CONSTIPATION
     Dates: start: 20170712
  18. LYRICA [Concomitant]
     Active Substance: PREGABALIN
     Indication: NEURALGIA
     Dates: start: 20151002, end: 20171227
  19. METHOTREXATE. [Concomitant]
     Active Substance: METHOTREXATE
     Dates: start: 20191209
  20. SPECIAFOLDINE [Concomitant]
     Active Substance: FOLIC ACID
     Indication: PRURITUS
     Dates: start: 20190911
  21. UVEDOSE [Concomitant]
     Active Substance: CHOLECALCIFEROL
     Indication: VITAMIN D DEFICIENCY
     Dates: start: 20161206
  22. UVEDOSE [Concomitant]
     Active Substance: CHOLECALCIFEROL
     Dates: start: 20150528, end: 20150623
  23. METOJECT [Concomitant]
     Active Substance: METHOTREXATE SODIUM
     Dosage: ON MONDAYS THEN 20 MG THE NEXT WEEK TO BE CONTINUED
  24. PNEUMO 23 [Concomitant]
     Active Substance: PNEUMOCOCCAL VACCINE, POLYVALENT 23
  25. METOPIMAZINE [Concomitant]
     Active Substance: METOPIMAZINE
     Dates: start: 20191212, end: 20191216
  26. TOVIAZ [Concomitant]
     Active Substance: FESOTERODINE FUMARATE
     Indication: BLADDER DISORDER
     Dates: start: 20160127, end: 20161219
  27. TOVIAZ [Concomitant]
     Active Substance: FESOTERODINE FUMARATE
     Dates: start: 20180303
  28. PARACETAMOL [Concomitant]
     Active Substance: ACETAMINOPHEN
  29. OCRELIZUMAB. [Suspect]
     Active Substance: OCRELIZUMAB
     Indication: PRIMARY PROGRESSIVE MULTIPLE SCLEROSIS
     Route: 042
     Dates: start: 20120620, end: 20160223
  30. OCRELIZUMAB. [Suspect]
     Active Substance: OCRELIZUMAB
     Route: 042
     Dates: start: 20170124
  31. OCRELIZUMAB. [Suspect]
     Active Substance: OCRELIZUMAB
     Route: 042
     Dates: start: 20170712
  32. OCRELIZUMAB. [Suspect]
     Active Substance: OCRELIZUMAB
     Route: 042
     Dates: start: 20171227
  33. GUTRON [Concomitant]
     Active Substance: MIDODRINE HYDROCHLORIDE
  34. ATORVASTATINE [Concomitant]
     Active Substance: ATORVASTATIN
     Indication: HYPERCHOLESTEROLAEMIA
     Dates: start: 20160224
  35. DIPROLENE [Concomitant]
     Active Substance: BETAMETHASONE DIPROPIONATE
     Indication: PRURITUS ALLERGIC
     Dates: start: 20140318, end: 20140323
  36. METHOTREXATE. [Concomitant]
     Active Substance: METHOTREXATE
     Dates: start: 20190909, end: 20190909
  37. METHOTREXATE. [Concomitant]
     Active Substance: METHOTREXATE
     Dates: start: 20190916
  38. METHYLPREDNISOLONE. [Concomitant]
     Active Substance: METHYLPREDNISOLONE
     Indication: PREMEDICATION
     Dosage: SUBSEQUENT DOSES ON 04/JUL/2012, 05/DEC/2012, 21/DEC/2012, 22/MAY/2013, 05/JUN/2013, 06/NOV/2013, 20
     Dates: start: 20120620
  39. CLARELUX [Concomitant]
     Active Substance: CLOBETASOL PROPIONATE
     Indication: PRURITUS ALLERGIC
     Dates: start: 20150210, end: 20150913
  40. METHOTREXATE. [Concomitant]
     Active Substance: METHOTREXATE
     Indication: PRURITUS
     Dates: start: 20190903, end: 20190903
  41. UVEDOSE [Concomitant]
     Active Substance: CHOLECALCIFEROL
     Dates: start: 20150624, end: 20161206
  42. HEPT?A?MYL [Concomitant]
     Active Substance: HEPTAMINOL HYDROCHLORIDE
  43. OCRELIZUMAB. [Suspect]
     Active Substance: OCRELIZUMAB
     Route: 042
     Dates: start: 20180613
  44. VESICARE [Concomitant]
     Active Substance: SOLIFENACIN SUCCINATE
  45. TOVIAZ [Concomitant]
     Active Substance: FESOTERODINE FUMARATE
  46. PERFALGAN [Concomitant]
     Active Substance: ACETAMINOPHEN
     Indication: PREMEDICATION
     Dosage: SUBSEQUENT DOSES ON 04/JUL/2012, 05/DEC/2012, 21/DEC/2012, 22/MAY/2013, 05/JUN/2013, 06/NOV/2013, 20
     Dates: start: 20120620
  47. CERAT DE GALIEN [Concomitant]
     Indication: PRURITUS ALLERGIC
     Dates: start: 20140318, end: 20140703
  48. GLYCEROL [Concomitant]
     Active Substance: GLYCERIN
     Indication: PRURITUS ALLERGIC
     Dates: start: 20150914
  49. MYCOSTER [Concomitant]
     Active Substance: CICLOPIROX\CICLOPIROX OLAMINE
     Indication: PRURITUS
     Dates: start: 20190129
  50. DIPROLENE [Concomitant]
     Active Substance: BETAMETHASONE DIPROPIONATE
     Indication: PRURITUS
     Dates: start: 20190125
  51. DIPROLENE [Concomitant]
     Active Substance: BETAMETHASONE DIPROPIONATE
     Dates: start: 20151002
  52. DIPHTHERIA AND TETANUS TOXOIDS AND PERTUSSIS VACCINE ADSORBED NOS [Concomitant]
     Active Substance: DIPHTHERIA AND TETANUS TOXOIDS AND PERTUSSIS VACCINE
     Indication: PROPHYLAXIS
     Dates: start: 20190904, end: 20190904
  53. UVEDOSE [Concomitant]
     Active Substance: CHOLECALCIFEROL
     Dates: start: 20131106, end: 20150527

REACTIONS (3)
  - Gait disturbance [Recovered/Resolved]
  - Infusion related reaction [Recovered/Resolved]
  - Lymphadenopathy [Recovered/Resolved]

NARRATIVE: CASE EVENT DATE: 20121206
